FAERS Safety Report 5926754-0 (Version None)
Quarter: 2008Q4

REPORT INFORMATION
  Report Type: 
  Country: None (occurrence: None)
  Receive Date: 20081017
  Receipt Date: 20081002
  Transmission Date: 20090506
  Serious: Yes (Other)
  Sender: FDA-Public Use
  Company Number: SPV1-2008-02115

PATIENT
  Age: 11 Year
  Sex: Male
  Weight: 30 kg

DRUGS (16)
  1. ELAPRASE [Suspect]
     Indication: MUCOPOLYSACCHARIDOSIS II
     Dosage: 12 MG, 1X/WEEK, IV DRIP
     Route: 041
     Dates: start: 20080813
  2. ELAPRASE [Suspect]
  3. VENTOLIN /00139501/ (SALBUTAMOL) [Concomitant]
  4. PULMICORT [Concomitant]
  5. FLONASE [Concomitant]
  6. SINGULAIR /01362601/ (MONTELUKAST) [Concomitant]
  7. RANITIDINE [Concomitant]
  8. CARBAMAZEPINE [Concomitant]
  9. ZINC (ZINC) [Concomitant]
  10. VITAMIN C /00008001/ (ASCORBIC ACID) [Concomitant]
  11. B COMPLEX /00212701/ (NICOTINAMIDE, PYRIDOXINE HYDROCHLORIDE, RIBOFLAV [Concomitant]
  12. MULTIVITAMIN /00097801/ (ASCORBIC ACID, CALCIUM PANTOTHENATE, ERGOCALC [Concomitant]
  13. SOY ISOFLAVONES (GLYCINE MAX EXTRACT) [Concomitant]
  14. DOMPERIDON /00498201/ (DOMEPERIDONE) [Concomitant]
  15. LACTULOSE [Concomitant]
  16. DIPHENHYDRAMINE HCL [Concomitant]

REACTIONS (7)
  - AGITATION [None]
  - COUGH [None]
  - DERMATITIS ALLERGIC [None]
  - DISCOMFORT [None]
  - HEART RATE INCREASED [None]
  - INFUSION RELATED REACTION [None]
  - WHEEZING [None]
